FAERS Safety Report 25121396 (Version 1)
Quarter: 2025Q1

REPORT INFORMATION
  Report Type: Spontaneous
  Country: GB (occurrence: GB)
  Receive Date: 20250326
  Receipt Date: 20250326
  Transmission Date: 20250408
  Serious: Yes (Death, Other)
  Sender: TEVA
  Company Number: GB-PHARMVIT-4556-3352-ER25-RN1376

PATIENT
  Age: 71 Year
  Sex: Male

DRUGS (1)
  1. PREDNISOLONE [Suspect]
     Active Substance: PREDNISOLONE
     Indication: Product used for unknown indication
     Route: 065

REACTIONS (4)
  - Immunosuppression [Not Recovered/Not Resolved]
  - COVID-19 pneumonia [Fatal]
  - Vaccination failure [Not Recovered/Not Resolved]
  - Vaccine interaction [Not Recovered/Not Resolved]
